FAERS Safety Report 5144281-8 (Version None)
Quarter: 2006Q4

REPORT INFORMATION
  Report Type: 
  Country: None (occurrence: None)
  Receive Date: 20061030
  Receipt Date: 20061017
  Transmission Date: 20070319
  Serious: Yes (Disabling, Other)
  Sender: FDA-Public Use
  Company Number: 229702

PATIENT
  Age: 61 Year
  Sex: Male
  Weight: 79.4 kg

DRUGS (3)
  1. RITUXAN [Suspect]
     Indication: MULTIPLE SCLEROSIS
     Dates: start: 20050801, end: 20060301
  2. NOVANTRONE [Suspect]
     Indication: MULTIPLE SCLEROSIS
     Dosage: 12 MG/M2, Q3M , INTRAVENOUS
     Route: 042
     Dates: start: 20021021, end: 20031003
  3. SOLU0MEDROL (METHYLPREDNISOLONE SODIUM SUCCINATE) [Concomitant]

REACTIONS (1)
  - PANCREATIC CARCINOMA [None]
